FAERS Safety Report 4467867-2 (Version None)
Quarter: 2004Q3

REPORT INFORMATION
  Report Type: 
  Country: None (occurrence: None)
  Receive Date: 20040927
  Receipt Date: 20040910
  Transmission Date: 20050211
  Serious: Yes (Death, Hospitalization)
  Sender: FDA-Public Use
  Company Number: WSDF_00425

PATIENT
  Age: 65 Year
  Sex: Male

DRUGS (2)
  1. WINRHO SDF [Suspect]
     Dates: start: 20040820, end: 20040820
  2. GAMUNEX [Concomitant]

REACTIONS (3)
  - ANTI-HBC ANTIBODY POSITIVE [None]
  - HEPATITIS B SURFACE ANTIGEN POSITIVE [None]
  - HEPATITIS C POSITIVE [None]
